FAERS Safety Report 7729999-2 (Version None)
Quarter: 2011Q3

REPORT INFORMATION
  Report Type: 
  Country: None (occurrence: None)
  Receive Date: 20110906
  Receipt Date: 20110824
  Transmission Date: 20111222
  Serious: Yes (Hospitalization, Disabling)
  Sender: FDA-Public Use
  Company Number: PHHY2011FR23389

PATIENT
  Sex: Female
  Weight: 78.3 kg

DRUGS (6)
  1. CLOZAPINE [Suspect]
     Indication: IMPULSIVE BEHAVIOUR
     Dosage: 300 MG 3 DF
     Route: 048
     Dates: start: 20061214, end: 20110215
  2. PAROXETINE HCL [Concomitant]
  3. PRAZEPAM [Concomitant]
  4. LEVOTHYROXINE SODIUM [Concomitant]
  5. CLOZAPINE [Suspect]
     Dates: start: 20101215, end: 20110215
  6. EFFEXOR [Concomitant]
     Dosage: 75 MG, BID

REACTIONS (4)
  - FRACTURE [None]
  - CONVULSION [None]
  - JOINT DISLOCATION [None]
  - LIMB DISCOMFORT [None]
